FAERS Safety Report 21560077 (Version 1)
Quarter: 2022Q4

REPORT INFORMATION
  Report Type: Spontaneous
  Country: FR (occurrence: FR)
  Receive Date: 20221107
  Receipt Date: 20221107
  Transmission Date: 20230113
  Serious: Yes (Hospitalization, Other)
  Sender: FDA-Public Use
  Company Number: FR-ADDMEDICA-2022000078

PATIENT
  Age: 16 Year
  Sex: Female
  Weight: 42.5 kg

DRUGS (3)
  1. SIKLOS [Suspect]
     Active Substance: HYDROXYUREA
     Indication: Cerebrovascular accident prophylaxis
     Route: 048
     Dates: start: 201912
  2. SIKLOS [Suspect]
     Active Substance: HYDROXYUREA
     Indication: Cerebrovascular accident prophylaxis
     Dosage: 2400 MG / 42.5 KG / D
     Route: 048
     Dates: start: 202207, end: 202209
  3. EXJADE [Concomitant]
     Active Substance: DEFERASIROX
     Indication: Product used for unknown indication
     Route: 048
     Dates: start: 202104

REACTIONS (5)
  - Pancytopenia [Recovering/Resolving]
  - Headache [Recovering/Resolving]
  - Asthenia [Recovering/Resolving]
  - Abdominal pain [Recovering/Resolving]
  - Accidental overdose [Recovered/Resolved]

NARRATIVE: CASE EVENT DATE: 20220701
